FAERS Safety Report 17795132 (Version 3)
Quarter: 2020Q2

REPORT INFORMATION
  Report Type: Spontaneous
  Country: DK (occurrence: DK)
  Receive Date: 20200515
  Receipt Date: 20200615
  Transmission Date: 20200714
  Serious: Yes (Hospitalization)
  Sender: FDA-Public Use
  Company Number: DK-BIOGEN-2020BI00875481

PATIENT
  Age: 55 Year
  Sex: Male
  Weight: 75 kg

DRUGS (13)
  1. TECFIDERA [Concomitant]
     Active Substance: DIMETHYL FUMARATE
     Indication: MULTIPLE SCLEROSIS
     Dosage: STARTING DOSE
     Route: 048
     Dates: start: 20160303, end: 20160310
  2. TECFIDERA [Concomitant]
     Active Substance: DIMETHYL FUMARATE
     Dosage: MAINTENANCE DOSE
     Route: 048
     Dates: start: 20160311
  3. LOSARTAN POTASSIUM. [Concomitant]
     Active Substance: LOSARTAN POTASSIUM
     Indication: BLOOD PRESSURE MEASUREMENT
     Route: 065
     Dates: start: 20191011
  4. FAMPYRA [Suspect]
     Active Substance: DALFAMPRIDINE
     Indication: MULTIPLE SCLEROSIS
     Route: 065
     Dates: start: 20151215
  5. BETNOVAT [Concomitant]
     Active Substance: BETAMETHASONE
     Indication: PSORIASIS
     Route: 065
     Dates: start: 20160323
  6. FERRO DURETTER [Concomitant]
     Active Substance: FERROUS SULFATE
     Indication: IRON DEFICIENCY
     Route: 065
  7. BACLOFEN. [Concomitant]
     Active Substance: BACLOFEN
     Indication: MUSCLE SPASMS
     Route: 065
     Dates: start: 20180403
  8. BRILIQUE [Concomitant]
     Active Substance: TICAGRELOR
     Indication: ANTICOAGULANT THERAPY
     Route: 065
     Dates: start: 20161108
  9. DEXTROMETHORPHAN [Concomitant]
     Active Substance: DEXTROMETHORPHAN
     Indication: COUGH
     Route: 065
     Dates: start: 20200305
  10. JANUMET [Concomitant]
     Active Substance: METFORMIN HYDROCHLORIDE\SITAGLIPTIN PHOSPHATE
     Indication: TYPE 2 DIABETES MELLITUS
     Route: 065
     Dates: start: 20160802
  11. NITROLINGUAL [Concomitant]
     Active Substance: NITROGLYCERIN
     Indication: ANGINA PECTORIS
     Route: 065
     Dates: start: 20161110
  12. RAMIPRIL. [Concomitant]
     Active Substance: RAMIPRIL
     Indication: BLOOD PRESSURE MEASUREMENT
  13. ATORVASTATIN [Concomitant]
     Active Substance: ATORVASTATIN
     Indication: CARDIOVASCULAR EVENT PROPHYLAXIS
     Route: 065
     Dates: start: 20161109

REACTIONS (1)
  - Nephrolithiasis [Recovered/Resolved]

NARRATIVE: CASE EVENT DATE: 2016
